FAERS Safety Report 7221708-9 (Version None)
Quarter: 2011Q1

REPORT INFORMATION
  Report Type: 
  Country: None (occurrence: None)
  Receive Date: 20110112
  Receipt Date: 20110110
  Transmission Date: 20110831
  Serious: Yes (Other)
  Sender: FDA-Public Use
  Company Number: DE-PFIZER INC-2011005468

PATIENT
  Age: 45 Year
  Sex: Female

DRUGS (1)
  1. CLINDAMYCIN HCL [Suspect]
     Dosage: 600 MG, 2X/DAY
     Route: 048

REACTIONS (7)
  - PRURITUS [None]
  - GASTROINTESTINAL TRACT IRRITATION [None]
  - RASH MACULAR [None]
  - TONGUE OEDEMA [None]
  - DYSPHAGIA [None]
  - ERYTHEMA [None]
  - ABDOMINAL DISTENSION [None]
